FAERS Safety Report 7061360-9 (Version None)
Quarter: 2010Q4

REPORT INFORMATION
  Report Type: 
  Country: None (occurrence: None)
  Receive Date: 20101026
  Receipt Date: 20101025
  Transmission Date: 20110411
  Serious: Yes (Hospitalization)
  Sender: FDA-Public Use
  Company Number: DK-BRISTOL-MYERS SQUIBB COMPANY-15348568

PATIENT
  Age: 35 Year
  Sex: Female
  Weight: 88 kg

DRUGS (10)
  1. ABILIFY [Suspect]
     Indication: DEPRESSION
     Route: 048
     Dates: start: 20100112, end: 20100617
  2. FONTEX [Interacting]
     Indication: DEPRESSION
     Dosage: 2TABS DAILY AND 3TABS WKLY
     Dates: start: 20051121, end: 20100803
  3. LITHIUM CITRATE [Concomitant]
     Indication: DEPRESSION
     Dosage: 1DF=6 MMOL;PROLONGED RELEASE TABLET
     Route: 048
     Dates: start: 20041222
  4. IMOCLONE [Concomitant]
     Indication: INSOMNIA
     Dosage: IMOCLONE TABS
     Route: 048
     Dates: start: 20091201
  5. MAGNESIUM HYDROXIDE [Concomitant]
     Indication: CONSTIPATION
     Dosage: MAGNESIUM HYDROXIDE TABS
     Route: 048
     Dates: start: 20070220
  6. NEXIUM [Concomitant]
     Indication: ABDOMINAL DISCOMFORT
     Dosage: NEXIUM TABS
     Route: 048
     Dates: start: 20070320
  7. OXYCONTIN [Concomitant]
     Indication: ARTHRALGIA
     Dosage: PROLONGED RELEASE TABLET
     Route: 048
     Dates: start: 20060206
  8. OXYCODONE HCL [Concomitant]
     Indication: ARTHRALGIA
     Dosage: MAXIMUM THRICE PER DAY
     Route: 048
     Dates: start: 20060818
  9. OXAPAX [Concomitant]
     Indication: MUSCLE RELAXANT THERAPY
     Dosage: MAX 4 TIMES PER DAY;OXAPAX TABS
     Dates: start: 20080926, end: 20100818
  10. YASMIN [Concomitant]
     Indication: CONTRACEPTION
     Dosage: 1DF:1 TABLET
     Route: 048

REACTIONS (2)
  - DRUG INTERACTION [None]
  - SEROTONIN SYNDROME [None]
